FAERS Safety Report 5731799-X (Version None)
Quarter: 2008Q2

REPORT INFORMATION
  Report Type: 
  Country: None (occurrence: None)
  Receive Date: 20080506
  Receipt Date: 20080424
  Transmission Date: 20081010
  Serious: Yes (Hospitalization, Other)
  Sender: FDA-Public Use
  Company Number: 100#08#2008-02364

PATIENT
  Age: 30 Year
  Sex: Female

DRUGS (3)
  1. ACTIVATED CHARCOAL (ACTIVATED CHARCOAL) [Suspect]
     Indication: DRUG TOXICITY
     Dosage: 350 G
  2. CARBAMAZEPINE [Suspect]
     Dosage: 4 G
  3. ALPRAZOLAM [Suspect]
     Indication: DRUG USE FOR UNKNOWN INDICATION
     Dosage: 40 MG

REACTIONS (10)
  - ABDOMINAL PAIN [None]
  - BEZOAR [None]
  - INTESTINAL OBSTRUCTION [None]
  - MULTIPLE DRUG OVERDOSE [None]
  - NAUSEA [None]
  - OVERDOSE [None]
  - SOMNOLENCE [None]
  - SUICIDE ATTEMPT [None]
  - URINARY TRACT INFECTION [None]
  - VOMITING [None]
